FAERS Safety Report 16914679 (Version 4)
Quarter: 2020Q2

REPORT INFORMATION
  Report Type: Spontaneous
  Country: DE (occurrence: DE)
  Receive Date: 20191014
  Receipt Date: 20200617
  Transmission Date: 20200713
  Serious: Yes (Hospitalization)
  Sender: FDA-Public Use
  Company Number: DE-PFIZER INC-2019435797

PATIENT
  Age: 83 Year
  Sex: Female

DRUGS (3)
  1. TAVOR (LORAZEPAM) [Suspect]
     Active Substance: LORAZEPAM
     Dosage: 2.5 MG, 3X/DAY
     Dates: start: 201909
  2. TAVOR (LORAZEPAM) [Suspect]
     Active Substance: LORAZEPAM
     Indication: ANXIETY
     Dosage: UNK
     Dates: start: 1973
  3. TAVOR EXPIDET [Suspect]
     Active Substance: LORAZEPAM
     Indication: ANXIETY
     Dosage: 2.5 MG, 3X/DAY, SOMETIMES ADDITIONALLY 2.5MG BEFORE SLEEPING

REACTIONS (8)
  - Incorrect product administration duration [Unknown]
  - Poor quality product administered [Unknown]
  - Product physical issue [Unknown]
  - Product complaint [Unknown]
  - Tachycardia [Unknown]
  - Dysgeusia [Unknown]
  - Drug ineffective [Unknown]
  - Dyspnoea [Unknown]

NARRATIVE: CASE EVENT DATE: 2019
